FAERS Safety Report 19464513 (Version 2)
Quarter: 2021Q2

REPORT INFORMATION
  Report Type: Spontaneous
  Country: US (occurrence: US)
  Receive Date: 20210626
  Receipt Date: 20210626
  Transmission Date: 20210717
  Serious: Yes (Hospitalization, Other)
  Sender: FDA-Public Use
  Company Number: US-EPICPHARMA-US-2021EPCLIT00652

PATIENT
  Age: 72 Year
  Sex: Female

DRUGS (8)
  1. CALCIUM GLUCONATE. [Interacting]
     Active Substance: CALCIUM GLUCONATE
     Indication: HYPERKALAEMIA
     Route: 065
  2. ALBUTEROL [SALBUTAMOL] [Interacting]
     Active Substance: ALBUTEROL
     Indication: HYPERKALAEMIA
     Route: 065
  3. SODIUM BICARBONATE. [Interacting]
     Active Substance: SODIUM BICARBONATE
     Indication: SUPPORTIVE CARE
     Route: 065
  4. INSULIN, REGULAR [Interacting]
     Active Substance: INSULIN NOS
     Indication: HYPERKALAEMIA
     Route: 065
  5. CALCIUM CHLORIDE. [Interacting]
     Active Substance: CALCIUM CHLORIDE
     Indication: SUPPORTIVE CARE
     Route: 065
  6. POTASSIUM CHLORIDE. [Suspect]
     Active Substance: POTASSIUM CHLORIDE
     Indication: PRODUCT USED FOR UNKNOWN INDICATION
     Dosage: SUSTAINED RELEASE TABLETS
     Route: 048
  7. CALCIUM POLYSTYRENE SULFONATE [Interacting]
     Active Substance: CALCIUM POLYSTYRENE SULFONATE
     Indication: HYPERKALAEMIA
     Route: 065
  8. FUROSEMIDE. [Interacting]
     Active Substance: FUROSEMIDE
     Indication: HYPERKALAEMIA
     Route: 065

REACTIONS (4)
  - Intentional overdose [Recovered/Resolved]
  - Hyperkalaemia [Recovered/Resolved]
  - Haemodynamic instability [Recovered/Resolved]
  - Ileus [Recovered/Resolved]
